FAERS Safety Report 11180424 (Version 7)
Quarter: 2015Q3

REPORT INFORMATION
  Report Type: Report from Study
  Country: CA (occurrence: CA)
  Receive Date: 20150611
  Receipt Date: 20150925
  Transmission Date: 20151125
  Serious: Yes (Other)
  Sender: FDA-Public Use
  Company Number: CA-PFIZER INC-2015186261

PATIENT
  Age: 57 Year
  Sex: Female
  Weight: 111 kg

DRUGS (11)
  1. FLUOROURACIL. [Suspect]
     Active Substance: FLUOROURACIL
     Dosage: 5250 MG (CONTINUOUS INFUSION), 46-HOUR INFUSION ON EVERY 2 WEEKS
     Route: 041
     Dates: start: 20150420, end: 20150513
  2. COVERSYL /00790702/ [Concomitant]
     Active Substance: PERINDOPRIL
     Indication: HYPERTENSION
     Dosage: UNK
     Dates: start: 201310
  3. CYMBALTA [Concomitant]
     Active Substance: DULOXETINE HYDROCHLORIDE
     Indication: PAIN
     Dosage: UNK
     Dates: start: 201108
  4. RESTORALAX [Concomitant]
     Active Substance: POLYETHYLENE GLYCOL 3350
     Indication: CONSTIPATION PROPHYLAXIS
     Dosage: UNK
     Dates: start: 20150520
  5. LEUCOVORIN. [Suspect]
     Active Substance: LEUCOVORIN
     Indication: COLORECTAL CANCER METASTATIC
     Dosage: 875 MG, EVERY 2 WEEKS
     Route: 042
     Dates: start: 20150420, end: 20150511
  6. FLUOROURACIL. [Suspect]
     Active Substance: FLUOROURACIL
     Indication: COLORECTAL CANCER METASTATIC
     Dosage: 875 MG (BOLUS), EVERY 2 WEEKS
     Route: 040
     Dates: start: 20150420, end: 20150511
  7. ATIVAN [Concomitant]
     Active Substance: LORAZEPAM
     Indication: SLEEP DISORDER
     Dosage: UNK
     Dates: start: 20140520
  8. IRINOTECAN HCL [Suspect]
     Active Substance: IRINOTECAN HYDROCHLORIDE
     Indication: COLORECTAL CANCER METASTATIC
     Dosage: 390 MG, EVERY 2 WEEKS
     Route: 042
     Dates: start: 20150420, end: 20150511
  9. FRAGMIN [Concomitant]
     Active Substance: DALTEPARIN SODIUM
     Indication: PULMONARY EMBOLISM
     Dosage: UNK
     Dates: start: 20140814
  10. NEULASTA [Concomitant]
     Active Substance: PEGFILGRASTIM
     Indication: PROPHYLAXIS
     Dosage: UNK
     Dates: start: 20150514, end: 20150514
  11. PF-05212384 [Suspect]
     Active Substance: GEDATOLISIB
     Indication: COLORECTAL CANCER METASTATIC
     Dosage: 150 MG, CYCLIC (WEEKLY)
     Route: 042
     Dates: start: 20150422, end: 20150513

REACTIONS (1)
  - Anal fistula [Recovered/Resolved]

NARRATIVE: CASE EVENT DATE: 20150522
